FAERS Safety Report 20640780 (Version 1)
Quarter: 2022Q1

REPORT INFORMATION
  Report Type: Spontaneous
  Country: US (occurrence: US)
  Receive Date: 20220327
  Receipt Date: 20220327
  Transmission Date: 20220423
  Serious: No
  Sender: FDA-Public Use
  Company Number: US-BRISTOL-MYERS SQUIBB COMPANY-BMS-2022-040047

PATIENT
  Sex: Male
  Weight: 86.182 kg

DRUGS (1)
  1. ELIQUIS [Suspect]
     Active Substance: APIXABAN
     Indication: Atrial fibrillation
     Dosage: UNAVAILABLE
     Route: 048
     Dates: start: 20211222

REACTIONS (7)
  - Dyspnoea [Unknown]
  - Skin disorder [Unknown]
  - Acne [Unknown]
  - Rash [Unknown]
  - Urticaria [Unknown]
  - Gastric disorder [Unknown]
  - Abdominal pain upper [Recovered/Resolved]
